FAERS Safety Report 9290135 (Version 1)
Quarter: 2013Q2

REPORT INFORMATION
  Report Type: Spontaneous
  Country: US (occurrence: US)
  Receive Date: 20130515
  Receipt Date: 20130515
  Transmission Date: 20140414
  Serious: Yes (Hospitalization)
  Sender: FDA-Public Use
  Company Number: US-ELI_LILLY_AND_COMPANY-US201305001457

PATIENT
  Age: 47 Year
  Sex: Male
  Weight: 72.6 kg

DRUGS (5)
  1. CYMBALTA [Suspect]
     Indication: ANXIETY
     Dosage: 60 MG, QD
     Route: 048
     Dates: start: 201301, end: 20130314
  2. VICODIN [Concomitant]
     Indication: BACK PAIN
     Dosage: UNK
     Route: 048
  3. MORPHINE [Concomitant]
     Indication: BACK PAIN
     Dosage: 30 MG, UNK
  4. TRAZODONE [Concomitant]
     Indication: INSOMNIA
     Dosage: 150 MG, UNK
     Route: 048
  5. ALBUTEROL [Concomitant]
     Indication: CHRONIC OBSTRUCTIVE PULMONARY DISEASE
     Dosage: 90 UG, UNK
     Dates: start: 20130314

REACTIONS (2)
  - Self-injurious ideation [Recovered/Resolved]
  - Depression [Recovered/Resolved]
